FAERS Safety Report 13648731 (Version 3)
Quarter: 2017Q3

REPORT INFORMATION
  Report Type: Report from Study
  Country: US (occurrence: US)
  Receive Date: 20170613
  Receipt Date: 20170721
  Transmission Date: 20171127
  Serious: Yes (Other)
  Sender: FDA-Public Use
  Company Number: US-NAPPMUNDI-USA-2017-0139330

PATIENT
  Sex: Female
  Weight: 74.83 kg

DRUGS (1)
  1. OXYCODONE HYDROCHLORIDE. [Suspect]
     Active Substance: OXYCODONE HYDROCHLORIDE
     Indication: ARTHRITIS
     Dosage: 40 MG, TID
     Route: 048
     Dates: start: 2007

REACTIONS (6)
  - Arthritis [Not Recovered/Not Resolved]
  - Neck surgery [Not Recovered/Not Resolved]
  - Unevaluable event [Not Recovered/Not Resolved]
  - Off label use [Not Recovered/Not Resolved]
  - Knee operation [Not Recovered/Not Resolved]
  - Back pain [Not Recovered/Not Resolved]

NARRATIVE: CASE EVENT DATE: 2007
